FAERS Safety Report 4917992-4 (Version None)
Quarter: 2006Q1

REPORT INFORMATION
  Report Type: 
  Country: None (occurrence: None)
  Receive Date: 20060221
  Receipt Date: 20051026
  Transmission Date: 20060701
  Serious: Yes (Hospitalization, Other)
  Sender: FDA-Public Use
  Company Number: US-MERCK-0510USA09465

PATIENT
  Age: 55 Year
  Sex: Male

DRUGS (1)
  1. VIOXX [Suspect]
     Indication: ARTHRITIS
     Route: 048
     Dates: start: 20000101, end: 20040901

REACTIONS (9)
  - ANGINA PECTORIS [None]
  - ANXIETY [None]
  - ARTERIAL STENOSIS [None]
  - BUNDLE BRANCH BLOCK LEFT [None]
  - CARDIAC DISORDER [None]
  - DIABETES MELLITUS [None]
  - DYSPNOEA [None]
  - HYPERLIPIDAEMIA [None]
  - LACUNAR INFARCTION [None]
